FAERS Safety Report 6589390-1 (Version None)
Quarter: 2010Q1

REPORT INFORMATION
  Report Type: 
  Country: None (occurrence: None)
  Receive Date: 20100218
  Receipt Date: 20100205
  Transmission Date: 20100710
  Serious: Yes (Disabling, Other)
  Sender: FDA-Public Use
  Company Number: US-CELGENEUS-163-50794-09111583

PATIENT
  Age: 59 Year
  Sex: Female

DRUGS (2)
  1. VIDAZA [Suspect]
     Route: 051
     Dates: start: 20100118, end: 20100122
  2. VIDAZA [Suspect]
     Route: 051
     Dates: start: 20091221, end: 20091224

REACTIONS (2)
  - PYODERMA GANGRENOSUM [None]
  - SKIN ULCER [None]
